FAERS Safety Report 21939584 (Version 3)
Quarter: 2023Q2

REPORT INFORMATION
  Report Type: Spontaneous
  Country: JP (occurrence: JP)
  Receive Date: 20230201
  Receipt Date: 20230504
  Transmission Date: 20230722
  Serious: Yes (Other)
  Sender: FDA-Public Use
  Company Number: JP-BRISTOL-MYERS SQUIBB COMPANY-2023-012162

PATIENT
  Age: 76 Year
  Sex: Male
  Weight: 49.8 kg

DRUGS (1)
  1. YERVOY [Suspect]
     Active Substance: IPILIMUMAB
     Indication: Malignant melanoma
     Dates: start: 201603

REACTIONS (8)
  - Nausea [Unknown]
  - Altered state of consciousness [Recovering/Resolving]
  - Secondary adrenocortical insufficiency [Not Recovered/Not Resolved]
  - Central hypothyroidism [Recovering/Resolving]
  - Hyponatraemia [Unknown]
  - Vomiting [Unknown]
  - Eosinophil count increased [Unknown]
  - Hypoglycaemia [Unknown]

NARRATIVE: CASE EVENT DATE: 20160607
